FAERS Safety Report 18954464 (Version 4)
Quarter: 2021Q3

REPORT INFORMATION
  Report Type: Spontaneous
  Country: US (occurrence: US)
  Receive Date: 20210301
  Receipt Date: 20210920
  Transmission Date: 20211014
  Serious: Yes (Other)
  Sender: FDA-Public Use
  Company Number: US-PFIZER INC-2021185341

PATIENT
  Age: 33 Year
  Sex: Female

DRUGS (1)
  1. XELJANZ XR [Suspect]
     Active Substance: TOFACITINIB CITRATE
     Indication: RHEUMATOID ARTHRITIS
     Dosage: 11 MG, DAILY
     Route: 048
     Dates: start: 20210105

REACTIONS (8)
  - Migraine [Unknown]
  - Anxiety [Unknown]
  - Product dose omission in error [Unknown]
  - Neuralgia [Unknown]
  - Drug ineffective [Unknown]
  - Pain in extremity [Unknown]
  - Pain [Unknown]
  - Nausea [Unknown]
